FAERS Safety Report 5251224-5 (Version None)
Quarter: 2007Q1

REPORT INFORMATION
  Report Type: 
  Country: None (occurrence: None)
  Receive Date: 20070228
  Receipt Date: 20061208
  Transmission Date: 20070707
  Serious: No
  Sender: FDA-Public Use
  Company Number: US-GLAXOSMITHKLINE-A0630954A

PATIENT
  Age: 14 Year
  Sex: Male

DRUGS (3)
  1. LAMICTAL [Suspect]
     Indication: SCHIZOAFFECTIVE DISORDER
     Dosage: 100MG TWICE PER DAY
     Route: 048
  2. GEODON [Concomitant]
  3. LEXAPRO [Concomitant]

REACTIONS (1)
  - RAPID EYE MOVEMENTS SLEEP ABNORMAL [None]
